FAERS Safety Report 5874631-6 (Version None)
Quarter: 2008Q3

REPORT INFORMATION
  Report Type: 
  Country: None (occurrence: None)
  Receive Date: 20080829
  Receipt Date: 20080114
  Transmission Date: 20090109
  Serious: Yes (Hospitalization)
  Sender: FDA-Public Use
  Company Number: 2008-00033FE

PATIENT
  Age: 43 Year
  Sex: Male

DRUGS (2)
  1. MENOGON HP (MENOPUR /01277604/) (MENOTROPHIN) [Suspect]
     Indication: HYPOGONADISM
     Dosage: 150 IU TIW SC
     Route: 058
  2. GONASI (CHORIONIC GONADOTROPHIN) [Suspect]
     Indication: HYPOGONADISM
     Dosage: 2000 IU TIW

REACTIONS (1)
  - SIMPLE PARTIAL SEIZURES [None]
